FAERS Safety Report 5515003-3 (Version None)
Quarter: 2007Q4

REPORT INFORMATION
  Report Type: 
  Country: None (occurrence: None)
  Receive Date: 20071113
  Receipt Date: 20061110
  Transmission Date: 20080405
  Serious: No
  Sender: FDA-Public Use
  Company Number: A0627025A

PATIENT
  Age: 57 Year
  Sex: Male

DRUGS (12)
  1. CARVEDILOL [Suspect]
     Dosage: 25MG TWICE PER DAY
     Route: 048
     Dates: start: 20030101
  2. ENALAPRIL MALEATE [Concomitant]
  3. ATACAND [Concomitant]
  4. ZETIA [Concomitant]
  5. LIPITOR [Concomitant]
  6. VITAMIN B6 + FOLIC ACID [Concomitant]
  7. ISOSORBIDE MONONITRATE [Concomitant]
  8. COUMADIN [Concomitant]
  9. NIACIN [Concomitant]
  10. MULTI-VITAMIN [Concomitant]
  11. CALCIUM MAGNESIUM [Concomitant]
  12. VITAMIN B COMPLEX CAP [Concomitant]

REACTIONS (2)
  - BLOOD PRESSURE INCREASED [None]
  - DRUG INEFFECTIVE [None]
